FAERS Safety Report 7951086-9 (Version None)
Quarter: 2011Q4

REPORT INFORMATION
  Report Type: 
  Country: None (occurrence: None)
  Receive Date: 20111201
  Receipt Date: 20111124
  Transmission Date: 20120403
  Serious: Yes (Other)
  Sender: FDA-Public Use
  Company Number: SE-JNJFOC-20111111201

PATIENT
  Age: 9 Year
  Sex: Male
  Weight: 30.1 kg

DRUGS (4)
  1. CONCERTA [Suspect]
     Route: 048
     Dates: start: 20110906
  2. CONCERTA [Suspect]
     Route: 048
     Dates: start: 20111017
  3. CONCERTA [Suspect]
     Route: 048
  4. CONCERTA [Suspect]
     Indication: PRODUCT USED FOR UNKNOWN INDICATION
     Route: 048
     Dates: start: 20110920

REACTIONS (2)
  - ELECTROCARDIOGRAM QT PROLONGED [None]
  - SYNCOPE [None]
